FAERS Safety Report 18217467 (Version 1)
Quarter: 2020Q3

REPORT INFORMATION
  Report Type: Report from Study
  Country: CN (occurrence: CN)
  Receive Date: 20200901
  Receipt Date: 20200901
  Transmission Date: 20201103
  Serious: Yes (Other)
  Sender: FDA-Public Use
  Company Number: CN-SUN PHARMACEUTICAL INDUSTRIES LTD-2019R1-218221

PATIENT

DRUGS (2)
  1. ERLOTINIB [Suspect]
     Active Substance: ERLOTINIB
     Indication: NON-SMALL CELL LUNG CANCER
     Dosage: UNK
     Route: 065
  2. APATINIB [Suspect]
     Active Substance: APATINIB
     Indication: NON-SMALL CELL LUNG CANCER
     Dosage: 250 MILLIGRAM, DAILY
     Route: 048

REACTIONS (1)
  - Drug resistance [Unknown]
